FAERS Safety Report 5298373-3 (Version None)
Quarter: 2007Q2

REPORT INFORMATION
  Report Type: 
  Country: None (occurrence: None)
  Receive Date: 20070416
  Receipt Date: 20070405
  Transmission Date: 20071010
  Serious: Yes (Death, Hospitalization)
  Sender: FDA-Public Use
  Company Number: US-PFIZER INC-2007026958

PATIENT
  Sex: Male
  Weight: 77.5 kg

DRUGS (5)
  1. SU-011,248 [Suspect]
     Indication: HEPATIC NEOPLASM MALIGNANT
     Route: 048
     Dates: start: 20070404, end: 20070404
  2. METOPROLOL SUCCINATE [Concomitant]
     Route: 048
  3. SPIRONOLACTONE [Concomitant]
     Route: 048
  4. OXYCODONE HCL [Concomitant]
  5. GLUCOVANCE [Concomitant]
     Dosage: TEXT:5/500MG-FREQ: 1-2 DAILY

REACTIONS (1)
  - DEATH [None]
